FAERS Safety Report 7231740-7 (Version None)
Quarter: 2011Q1

REPORT INFORMATION
  Report Type: 
  Country: None (occurrence: None)
  Receive Date: 20110118
  Receipt Date: 20110111
  Transmission Date: 20110831
  Serious: Yes (Hospitalization, Other)
  Sender: FDA-Public Use
  Company Number: BR-SANOFI-AVENTIS-2011SA002255

PATIENT
  Sex: Male
  Weight: 80 kg

DRUGS (8)
  1. SIMVASTATIN [Concomitant]
     Indication: BLOOD PRESSURE
     Route: 048
     Dates: start: 20101221
  2. CILOSTAZOL [Concomitant]
     Route: 048
     Dates: start: 20101221
  3. AAS [Concomitant]
     Route: 048
     Dates: start: 20101221
  4. MULTI-VITAMINS [Concomitant]
     Route: 048
     Dates: start: 20101221
  5. LANTUS [Suspect]
     Indication: TYPE 1 DIABETES MELLITUS
     Route: 058
     Dates: start: 20101224, end: 20110102
  6. AMLODIPINE [Concomitant]
     Indication: HYPERTENSION
     Route: 048
     Dates: start: 20101221
  7. APIDRA [Concomitant]
     Indication: TYPE 1 DIABETES MELLITUS
     Dosage: IF GLYCEMIA IS HIGH
     Route: 058
     Dates: start: 20101222, end: 20101226
  8. SELOZOK [Concomitant]
     Route: 048
     Dates: start: 20101221

REACTIONS (4)
  - MYOCARDIAL INFARCTION [None]
  - EXTREMITY NECROSIS [None]
  - PULMONARY OEDEMA [None]
  - HUNGER [None]
